FAERS Safety Report 6204722-1 (Version None)
Quarter: 2009Q2

REPORT INFORMATION
  Report Type: 
  Country: None (occurrence: None)
  Receive Date: 20090527
  Receipt Date: 20090519
  Transmission Date: 20091009
  Serious: Yes (Hospitalization)
  Sender: FDA-Public Use
  Company Number: PHHY2009MX18984

PATIENT
  Sex: Female

DRUGS (1)
  1. DIOVAN [Suspect]
     Indication: HYPERTENSION
     Dosage: 160 MG, QD
     Route: 048
     Dates: start: 20070401

REACTIONS (5)
  - BACK PAIN [None]
  - HYPOTENSION [None]
  - OEDEMA PERIPHERAL [None]
  - SPINAL OPERATION [None]
  - TREATMENT NONCOMPLIANCE [None]
